FAERS Safety Report 24366797 (Version 1)
Quarter: 2024Q3

REPORT INFORMATION
  Report Type: Other
  Country: US (occurrence: US)
  Receive Date: 20240926
  Receipt Date: 20240926
  Transmission Date: 20241016
  Serious: Yes (Life-Threatening, Hospitalization, Other)
  Sender: EYWA PHARMA
  Company Number: US-Eywa Pharma Inc.-2162038

PATIENT
  Age: 59 Year
  Sex: Female

DRUGS (14)
  1. ACETAZOLAMIDE [Suspect]
     Active Substance: ACETAZOLAMIDE
     Indication: Intraocular pressure increased
  2. MIDAZOLAM [Concomitant]
     Active Substance: MIDAZOLAM
  3. IRON [Concomitant]
     Active Substance: IRON
  4. PREDNISONE [Concomitant]
     Active Substance: PREDNISONE
  5. VITAMIN B2 [Concomitant]
     Active Substance: RIBOFLAVIN
  6. LIRAGLUTIDE [Concomitant]
     Active Substance: LIRAGLUTIDE
  7. OMEPRAZOLE [Concomitant]
     Active Substance: OMEPRAZOLE
  8. METFORMIN [Concomitant]
     Active Substance: METFORMIN HYDROCHLORIDE
  9. HYDROCHLOROTHIAZIDE\LOSARTAN [Concomitant]
     Active Substance: HYDROCHLOROTHIAZIDE\LOSARTAN
  10. INSULIN GLARGINE [Concomitant]
     Active Substance: INSULIN GLARGINE
  11. INSULIN LISPRO [Concomitant]
     Active Substance: INSULIN LISPRO
  12. FERROUS SULFATE [Concomitant]
     Active Substance: FERROUS SULFATE
  13. ATORVASTATIN CALCIUM [Concomitant]
     Active Substance: ATORVASTATIN CALCIUM
  14. NIRMATRELVIR\RITONAVIR [Concomitant]
     Active Substance: NIRMATRELVIR\RITONAVIR

REACTIONS (1)
  - Non-cardiogenic pulmonary oedema [Recovered/Resolved]
